FAERS Safety Report 20714018 (Version 1)
Quarter: 2022Q2

REPORT INFORMATION
  Report Type: Spontaneous
  Country: US (occurrence: None)
  Receive Date: 20220414
  Receipt Date: 20220414
  Transmission Date: 20220720
  Serious: Yes (Death)
  Sender: FDA-Public Use
  Company Number: None

PATIENT
  Age: 65 Year
  Sex: Male

DRUGS (17)
  1. AMBRISENTAN [Suspect]
     Active Substance: AMBRISENTAN
     Indication: Pulmonary arterial hypertension
     Dosage: FREQUENCY : DAILY;?
     Route: 048
     Dates: start: 20210824, end: 20220406
  2. SILDENAFIL [Concomitant]
     Active Substance: SILDENAFIL
  3. FAMOTIDINE [Concomitant]
     Active Substance: FAMOTIDINE
  4. NORCO [Concomitant]
     Active Substance: ACETAMINOPHEN\HYDROCODONE BITARTRATE
  5. ATORVASTATIN [Concomitant]
     Active Substance: ATORVASTATIN
  6. MIDODRINE [Concomitant]
     Active Substance: MIDODRINE
  7. RENVELA [Concomitant]
     Active Substance: SEVELAMER CARBONATE
  8. DROXIDOPA [Concomitant]
     Active Substance: DROXIDOPA
  9. WARFARIN [Concomitant]
     Active Substance: WARFARIN
  10. WARFARIN [Concomitant]
     Active Substance: WARFARIN
  11. DOCUSATE SODIUM [Concomitant]
     Active Substance: DOCUSATE SODIUM
  12. THIAMINE [Concomitant]
     Active Substance: THIAMINE
  13. HUMULIN R [Concomitant]
     Active Substance: INSULIN HUMAN
  14. LANTUS [Concomitant]
     Active Substance: INSULIN GLARGINE
  15. GABAPENTIN [Concomitant]
     Active Substance: GABAPENTIN
  16. VITAMIN B12 [Concomitant]
     Active Substance: CYANOCOBALAMIN
  17. NEPHRO VITE RX [Concomitant]
     Active Substance: ASCORBIC ACID\BIOTIN\CALCIUM PANTOTHENATE\CYANOCOBALAMIN\FOLIC ACID\NIACINAMIDE\PYRIDOXINE HYDROCHLO

REACTIONS (6)
  - Hypotension [None]
  - Subarachnoid haemorrhage [None]
  - Seizure [None]
  - Mental status changes [None]
  - Asthenia [None]
  - Palliative care [None]

NARRATIVE: CASE EVENT DATE: 20220406
